FAERS Safety Report 9650810 (Version 1)
Quarter: 2013Q4

REPORT INFORMATION
  Report Type: Spontaneous
  Country: US (occurrence: US)
  Receive Date: 20131029
  Receipt Date: 20131029
  Transmission Date: 20140711
  Serious: Yes (Hospitalization)
  Sender: FDA-Public Use
  Company Number: US-ASTRAZENECA-2013SE77491

PATIENT
  Age: 40 Year
  Sex: Female
  Weight: 53.5 kg

DRUGS (2)
  1. NEXIUM [Suspect]
     Indication: GASTROOESOPHAGEAL REFLUX DISEASE
     Route: 048
     Dates: start: 2006, end: 201310
  2. BACTRIM [Concomitant]
     Indication: ANTIBIOTIC THERAPY
     Route: 048
     Dates: start: 201310

REACTIONS (8)
  - Listeriosis [Unknown]
  - White blood cell count increased [Unknown]
  - Headache [Recovering/Resolving]
  - Pain [Recovering/Resolving]
  - Feeling hot [Recovering/Resolving]
  - Chills [Recovering/Resolving]
  - Pyrexia [Recovering/Resolving]
  - Diarrhoea [Unknown]
